FAERS Safety Report 18267716 (Version 1)
Quarter: 2020Q3

REPORT INFORMATION
  Report Type: Spontaneous
  Country: CO (occurrence: CO)
  Receive Date: 20200915
  Receipt Date: 20200915
  Transmission Date: 20201103
  Serious: Yes (Hospitalization)
  Sender: FDA-Public Use
  Company Number: CO-PFIZER INC-2020354735

PATIENT
  Age: 66 Year
  Sex: Female

DRUGS (1)
  1. REAMPLA [Suspect]
     Active Substance: PALBOCICLIB
     Dosage: 125 MG
     Route: 048
     Dates: start: 202008

REACTIONS (7)
  - Reduced facial expression [Unknown]
  - Blood calcium decreased [Unknown]
  - Gait disturbance [Unknown]
  - Hypertension [Unknown]
  - Hypoaesthesia [Unknown]
  - Tremor [Unknown]
  - Aphonia [Unknown]

NARRATIVE: CASE EVENT DATE: 20200909
